FAERS Safety Report 19789830 (Version 9)
Quarter: 2022Q2

REPORT INFORMATION
  Report Type: Report from Study
  Country: US (occurrence: US)
  Receive Date: 20210904
  Receipt Date: 20220404
  Transmission Date: 20220721
  Serious: No
  Sender: FDA-Public Use
  Company Number: NVSC2021US200626

PATIENT
  Sex: Male

DRUGS (8)
  1. ENTRESTO [Suspect]
     Active Substance: SACUBITRIL\VALSARTAN
     Indication: Cardiac failure
     Dosage: 1 DF, BID (24/26MG)
     Route: 048
     Dates: start: 20210701
  2. ENTRESTO [Suspect]
     Active Substance: SACUBITRIL\VALSARTAN
     Dosage: 0.5 DF, BID (24/26MG)
     Route: 048
  3. ENTRESTO [Suspect]
     Active Substance: SACUBITRIL\VALSARTAN
     Dosage: UNK
     Route: 048
     Dates: start: 202107
  4. ATORVASTATIN CALCIUM [Suspect]
     Active Substance: ATORVASTATIN CALCIUM
     Indication: Product used for unknown indication
     Dosage: 20 MG, QD
     Route: 048
     Dates: start: 202003
  5. ATORVASTATIN CALCIUM [Suspect]
     Active Substance: ATORVASTATIN CALCIUM
     Dosage: 40 MG, QD
     Route: 065
  6. METOPROLOL TARTRATE [Suspect]
     Active Substance: METOPROLOL TARTRATE
     Indication: Product used for unknown indication
     Dosage: 25 MG
     Route: 065
  7. METOPROLOL TARTRATE [Suspect]
     Active Substance: METOPROLOL TARTRATE
     Dosage: 50 MG
     Route: 065
  8. CARVEDILOL [Suspect]
     Active Substance: CARVEDILOL
     Indication: Product used for unknown indication
     Dosage: UNK
     Route: 065

REACTIONS (18)
  - Presyncope [Unknown]
  - Feeling abnormal [Recovered/Resolved]
  - Nasopharyngitis [Unknown]
  - Peripheral swelling [Unknown]
  - Hyponatraemia [Unknown]
  - Arthritis [Unknown]
  - Weight increased [Unknown]
  - Ejection fraction decreased [Not Recovered/Not Resolved]
  - Anxiety [Unknown]
  - Dizziness postural [Recovering/Resolving]
  - Fall [Recovered/Resolved]
  - Cough [Unknown]
  - Hypotension [Recovered/Resolved]
  - Gastroenteritis viral [Unknown]
  - Feeding disorder [Unknown]
  - Dehydration [Unknown]
  - Wrong technique in product usage process [Recovering/Resolving]
  - Product use in unapproved indication [Unknown]
